FAERS Safety Report 12497102 (Version 6)
Quarter: 2017Q1

REPORT INFORMATION
  Report Type: Report from Study
  Country: DE (occurrence: DE)
  Receive Date: 20160624
  Receipt Date: 20170213
  Transmission Date: 20170428
  Serious: Yes (Life-Threatening, Hospitalization, Other)
  Sender: FDA-Public Use
  Company Number: PHHY2016DE086507

PATIENT
  Sex: Male
  Weight: 118 kg

DRUGS (4)
  1. COSENTYX [Suspect]
     Active Substance: SECUKINUMAB
     Dosage: 300 MG, QW
     Route: 065
     Dates: start: 20160513
  2. COSENTYX [Suspect]
     Active Substance: SECUKINUMAB
     Dosage: 300 MG, QW
     Route: 065
     Dates: start: 20160506
  3. COSENTYX [Suspect]
     Active Substance: SECUKINUMAB
     Indication: PSORIASIS
     Dosage: 300 MG, QW, PREFILLED PEN
     Route: 065
     Dates: start: 20160429
  4. COSENTYX [Suspect]
     Active Substance: SECUKINUMAB
     Dosage: 300 MG, QW
     Route: 065
     Dates: start: 20160521, end: 20160521

REACTIONS (14)
  - Hypokinesia [Unknown]
  - Mitral valve incompetence [Unknown]
  - Angina unstable [Unknown]
  - Chest discomfort [Unknown]
  - Ventricular fibrillation [Recovering/Resolving]
  - Hyperhidrosis [Unknown]
  - Myocardial infarction [Recovered/Resolved]
  - Cardiac failure [Unknown]
  - Left atrial dilatation [Unknown]
  - Diastolic dysfunction [Unknown]
  - Ejection fraction decreased [Unknown]
  - Cardiac aneurysm [Unknown]
  - Hyperthyroidism [Unknown]
  - Coronary artery stenosis [Unknown]

NARRATIVE: CASE EVENT DATE: 20160620
